FAERS Safety Report 19014318 (Version 2)
Quarter: 2021Q2

REPORT INFORMATION
  Report Type: Report from Study
  Country: IT (occurrence: IT)
  Receive Date: 20210316
  Receipt Date: 20210403
  Transmission Date: 20210717
  Serious: Yes (Other)
  Sender: FDA-Public Use
  Company Number: IT-TEVA-2021-IT-1890140

PATIENT
  Age: 38 Year
  Sex: Female

DRUGS (2)
  1. GABAPENTIN. [Suspect]
     Active Substance: GABAPENTIN
     Indication: DEPRESSION
     Dosage: UNIT DOSE: 4 DOSAGE FORMS
     Route: 048
  2. XANAX [Suspect]
     Active Substance: ALPRAZOLAM
     Indication: DRUG ABUSE
     Dosage: UNIT DOSE: 10 MILLILITER
     Route: 048

REACTIONS (5)
  - Bradyphrenia [Recovered/Resolved]
  - Drug abuse [Recovered/Resolved]
  - Hypokinesia [Recovered/Resolved]
  - Oxygen saturation decreased [Recovered/Resolved]
  - Respiratory failure [Recovered/Resolved]

NARRATIVE: CASE EVENT DATE: 20210117
